FAERS Safety Report 14660264 (Version 2)
Quarter: 2018Q2

REPORT INFORMATION
  Report Type: Spontaneous
  Country: US (occurrence: US)
  Receive Date: 20180320
  Receipt Date: 20180418
  Transmission Date: 20180711
  Serious: No
  Sender: FDA-Public Use
  Company Number: US-BAYER-2018-053684

PATIENT
  Sex: Male

DRUGS (2)
  1. ALEVE TENS DEVICE DIRECT THERAPY UNIT [Suspect]
     Active Substance: DEVICE
     Indication: SPINAL COLUMN STENOSIS
     Dosage: USES THE DEVICE REGULARLY, NEARLY EVERYDAY
  2. ALEVE [Suspect]
     Active Substance: NAPROXEN SODIUM
     Indication: PAIN
     Dosage: 3 DF, QD
     Dates: start: 2013

REACTIONS (3)
  - Product prescribing issue [Unknown]
  - Therapeutic product effective for unapproved indication [Unknown]
  - Product identification number issue [Unknown]

NARRATIVE: CASE EVENT DATE: 2013
